FAERS Safety Report 12168164 (Version 1)
Quarter: 2016Q1

REPORT INFORMATION
  Report Type: Spontaneous
  Country: US (occurrence: None)
  Receive Date: 20160309
  Receipt Date: 20160309
  Transmission Date: 20160526
  Serious: Yes (Hospitalization)
  Sender: FDA-Public Use
  Company Number: None

PATIENT
  Age: 54 Year
  Sex: Female
  Weight: 59.1 kg

DRUGS (3)
  1. CARBOPLATIN. [Suspect]
     Active Substance: CARBOPLATIN
     Dates: end: 20150618
  2. METFORMIN HYDROCHLORIDE. [Suspect]
     Active Substance: METFORMIN HYDROCHLORIDE
     Dates: end: 20160303
  3. TAXOL [Suspect]
     Active Substance: PACLITAXEL
     Dates: end: 20150618

REACTIONS (7)
  - Brain neoplasm [None]
  - Visual impairment [None]
  - Nuclear magnetic resonance imaging brain abnormal [None]
  - Hereditary non-polyposis colorectal cancer syndrome [None]
  - Dizziness [None]
  - Hypokalaemia [None]
  - Headache [None]

NARRATIVE: CASE EVENT DATE: 20160303
